FAERS Safety Report 5852086-5 (Version None)
Quarter: 2008Q3

REPORT INFORMATION
  Report Type: 
  Country: None (occurrence: None)
  Receive Date: 20080819
  Receipt Date: 20080819
  Transmission Date: 20090109
  Serious: Yes (Hospitalization)
  Sender: FDA-Public Use
  Company Number: None

PATIENT

DRUGS (12)
  1. MICARDIS [Suspect]
     Indication: HYPERTENSION
     Dosage: 40MG DAILY PO (DURATION: WEEKS)
     Route: 048
  2. COLCHICINE [Concomitant]
  3. CYPROHEPTADINE HCL [Concomitant]
  4. CRESTOR [Concomitant]
  5. ALLOPURINOL [Concomitant]
  6. PLETAL [Concomitant]
  7. ADVAIR DISKUS 100/50 [Concomitant]
  8. PROCRIT [Concomitant]
  9. Z-BEC [Concomitant]
  10. AMBIEN [Concomitant]
  11. PERCOCET [Concomitant]
  12. MARINOL [Concomitant]

REACTIONS (1)
  - RENAL FAILURE ACUTE [None]
